FAERS Safety Report 8979279 (Version 1)
Quarter: 2012Q4

REPORT INFORMATION
  Report Type: 
  Country: IT (occurrence: IT)
  Receive Date: 20121221
  Receipt Date: 20121221
  Transmission Date: 20130627
  Serious: Yes (Hospitalization)
  Sender: FDA-Public Use
  Company Number: IT-MYLANLABS-2012S1025642

PATIENT
  Age: 32 Year
  Sex: Female

DRUGS (4)
  1. ALPRAZOLAM [Suspect]
     Indication: BIPOLAR II DISORDER
     Route: 048
     Dates: start: 20121128, end: 20121128
  2. BUPROPION [Suspect]
     Indication: BIPOLAR II DISORDER
     Route: 048
     Dates: start: 20121128, end: 20121128
  3. LAMOTRIGINE [Suspect]
     Indication: BIPOLAR II DISORDER
     Route: 048
     Dates: start: 20121128, end: 20121128
  4. CHLORPROMAZINE [Suspect]
     Indication: BIPOLAR II DISORDER
     Route: 048
     Dates: start: 20121128, end: 20121128

REACTIONS (3)
  - Overdose [Recovered/Resolved]
  - Drug abuse [Recovered/Resolved]
  - Psychomotor skills impaired [Recovered/Resolved]
